FAERS Safety Report 9920848 (Version 4)
Quarter: 2014Q1

REPORT INFORMATION
  Report Type: Report from Study
  Country: US (occurrence: US)
  Receive Date: 20140225
  Receipt Date: 20140310
  Transmission Date: 20141002
  Serious: Yes (Hospitalization)
  Sender: FDA-Public Use
  Company Number: US-ROCHE-1074856

PATIENT
  Age: 67 Year
  Sex: Female
  Weight: 68 kg

DRUGS (36)
  1. OBINUTUZUMAB [Suspect]
     Indication: NON-HODGKIN^S LYMPHOMA
     Dosage: MOST RECENT DOSE PRIOR TO SAE: 23/AUG/2012; LAST DOSE:1000MG
     Route: 042
     Dates: start: 20120525
  2. PREDNISONE [Suspect]
     Indication: NON-HODGKIN^S LYMPHOMA
     Dosage: MOST RECENT DOSE PRIOR TO SAE: 27/AUG/2012; LAST DOSE:100MG
     Route: 042
     Dates: start: 20120525
  3. CYCLOPHOSPHAMIDE [Suspect]
     Indication: NON-HODGKIN^S LYMPHOMA
     Dosage: MOST RECENT DOSE PRIOR TO SAE: 25/MAY/2012 AT DOSE OF : 1283 MG, LAST DOSE PRIOR TO SAE ON 23/AUG/20
     Route: 042
     Dates: start: 20120525
  4. DOXORUBICIN [Suspect]
     Indication: NON-HODGKIN^S LYMPHOMA
     Dosage: MOST RECENT DOSE PRIOR TO SAE:25/MAY/2012; LAST DOSE:86MG, ON 23/AUG/2012 AT A DOSE OF 42 MG.
     Route: 042
     Dates: start: 20120525
  5. VINCRISTINE [Suspect]
     Indication: NON-HODGKIN^S LYMPHOMA
     Dosage: MOST RECENT DOSE PRIOR TO SAE:25/MAY/2012, 23/AUG/2012 LAST DOSE:2MG
     Route: 042
     Dates: start: 20120525
  6. TYLENOL [Concomitant]
     Indication: PYREXIA
     Route: 065
     Dates: start: 20120525
  7. TYLENOL [Concomitant]
     Route: 065
     Dates: start: 20120814, end: 20120915
  8. COMPAZINE [Concomitant]
     Route: 065
     Dates: start: 20120525
  9. NEULASTA [Concomitant]
     Route: 065
     Dates: start: 20120527
  10. PROTONIX (UNITED STATES) [Concomitant]
     Indication: GASTROOESOPHAGEAL REFLUX DISEASE
     Route: 065
     Dates: start: 20120601
  11. NORMAL SALINE [Concomitant]
     Indication: DEHYDRATION
     Route: 065
     Dates: start: 20120601, end: 20120624
  12. VANCOMYCIN [Concomitant]
     Route: 065
     Dates: start: 20120601, end: 20120624
  13. ZOFRAN [Concomitant]
     Indication: NAUSEA
     Route: 065
     Dates: start: 20120601, end: 20120627
  14. ROXICODONE [Concomitant]
     Indication: PAIN
     Route: 065
     Dates: start: 20120602
  15. ATIVAN [Concomitant]
     Indication: NAUSEA
     Route: 065
     Dates: start: 20120602
  16. ATIVAN [Concomitant]
     Route: 065
     Dates: start: 20120622, end: 20120622
  17. IMODIUM [Concomitant]
     Indication: DIARRHOEA
     Route: 065
     Dates: start: 20120605
  18. SENOKOT [Concomitant]
     Indication: CONSTIPATION
     Route: 065
     Dates: start: 20120602
  19. MEDROL DOSEPAK [Concomitant]
     Route: 065
     Dates: start: 20120719
  20. LEVAQUIN [Concomitant]
     Route: 065
     Dates: start: 20120605, end: 20120612
  21. ALOXI [Concomitant]
     Route: 065
     Dates: start: 20120803, end: 20120803
  22. ALOXI [Concomitant]
     Route: 065
     Dates: start: 20120823, end: 20120823
  23. ALOXI [Concomitant]
     Route: 065
     Dates: start: 20120614, end: 20120614
  24. ALOXI [Concomitant]
     Route: 065
     Dates: start: 20120525, end: 20120525
  25. ACETAMINOPHEN [Concomitant]
     Route: 065
     Dates: start: 20120803, end: 20120803
  26. ACETAMINOPHEN [Concomitant]
     Route: 065
     Dates: start: 20120823, end: 20120823
  27. ACETAMINOPHEN [Concomitant]
     Route: 065
     Dates: start: 20120525, end: 20120525
  28. ACETAMINOPHEN [Concomitant]
     Route: 065
     Dates: start: 20120615, end: 20120615
  29. ACETAMINOPHEN [Concomitant]
     Route: 065
     Dates: start: 20120614, end: 20120614
  30. ACETAMINOPHEN [Concomitant]
     Route: 065
     Dates: start: 20120608, end: 20120608
  31. NORVASC [Concomitant]
     Indication: HYPERTENSION
     Route: 065
     Dates: start: 199209, end: 20120830
  32. ACYCLOVIR [Concomitant]
     Route: 065
     Dates: start: 20120830, end: 20120911
  33. MACRODANTIN [Concomitant]
     Indication: URINARY TRACT INFECTION
     Route: 065
     Dates: start: 20120814, end: 20120822
  34. CIPRO [Concomitant]
     Indication: ABSCESS
     Route: 065
     Dates: start: 20120728, end: 20120812
  35. PLAQUENIL [Concomitant]
     Indication: SYSTEMIC LUPUS ERYTHEMATOSUS
     Route: 065
     Dates: start: 197804
  36. ALLOPURINOL [Concomitant]
     Route: 065
     Dates: start: 20120525, end: 20120608

REACTIONS (3)
  - Febrile neutropenia [Recovered/Resolved]
  - Febrile neutropenia [Recovered/Resolved]
  - Enterococcal infection [Recovered/Resolved]
